FAERS Safety Report 5522199-6 (Version None)
Quarter: 2007Q4

REPORT INFORMATION
  Report Type: 
  Country: None (occurrence: None)
  Receive Date: 20071120
  Receipt Date: 20071114
  Transmission Date: 20080405
  Serious: Yes (Other)
  Sender: FDA-Public Use
  Company Number: B0495208A

PATIENT
  Age: 59 Year
  Sex: Female

DRUGS (1)
  1. REQUIP [Suspect]
     Indication: PARKINSON'S DISEASE
     Dosage: .25MG THREE TIMES PER DAY
     Route: 048
     Dates: start: 20071109

REACTIONS (2)
  - SYNCOPE [None]
  - VOMITING [None]
